FAERS Safety Report 20327834 (Version 1)
Quarter: 2022Q1

REPORT INFORMATION
  Report Type: Spontaneous
  Country: US (occurrence: None)
  Receive Date: 20220111
  Receipt Date: 20220111
  Transmission Date: 20220423
  Serious: Yes (Other)
  Sender: FDA-Public Use
  Company Number: None

PATIENT
  Age: 65 Year
  Sex: Female
  Weight: 47.25 kg

DRUGS (1)
  1. BREO ELLIPTA [Suspect]
     Active Substance: FLUTICASONE FUROATE\VILANTEROL TRIFENATATE
     Indication: Chronic obstructive pulmonary disease
     Dosage: OTHER QUANTITY : 1 SPRAY(S);?
     Route: 055
     Dates: start: 20220104, end: 20220111

REACTIONS (6)
  - Headache [None]
  - Nervousness [None]
  - Euphoric mood [None]
  - Constipation [None]
  - Abdominal pain upper [None]
  - Dry eye [None]

NARRATIVE: CASE EVENT DATE: 20220104
